FAERS Safety Report 6161374-7 (Version None)
Quarter: 2009Q2

REPORT INFORMATION
  Report Type: 
  Country: None (occurrence: None)
  Receive Date: 20090421
  Receipt Date: 20090415
  Transmission Date: 20091009
  Serious: Yes (Hospitalization)
  Sender: FDA-Public Use
  Company Number: IT-BAYER-200918486GPV

PATIENT
  Age: 34 Year
  Sex: Male

DRUGS (2)
  1. ALKA-SELTZER [Suspect]
     Indication: ANALGESIA
     Route: 048
     Dates: start: 20090202, end: 20090202
  2. MOMENT [Suspect]
     Indication: ANALGESIA
     Dosage: TOTAL DAILY DOSE: 200 MG  UNIT DOSE: 200 MG
     Route: 048
     Dates: start: 20090202, end: 20090202

REACTIONS (2)
  - DERMATITIS ALLERGIC [None]
  - RASH PRURITIC [None]
